FAERS Safety Report 7648358-4 (Version None)
Quarter: 2011Q3

REPORT INFORMATION
  Report Type: 
  Country: None (occurrence: None)
  Receive Date: 20110801
  Receipt Date: 20110730
  Transmission Date: 20111222
  Serious: Yes (Life-Threatening, Hospitalization, Disabling)
  Sender: FDA-Public Use
  Company Number: US-PFIZER INC-2005051115

PATIENT
  Sex: Male
  Weight: 65.5 kg

DRUGS (2)
  1. HYDROMORPHONE HCL [Concomitant]
     Route: 048
     Dates: start: 20030106
  2. SUNITINIB MALATE [Suspect]
     Indication: NEUROENDOCRINE CARCINOMA
     Dosage: 50 MG, 1X/DAY 4/2 SCHEDULE
     Route: 048
     Dates: start: 20041213, end: 20050403

REACTIONS (12)
  - PRESYNCOPE [None]
  - PAIN IN JAW [None]
  - TUMOUR COMPRESSION [None]
  - HEADACHE [None]
  - CARDIAC FAILURE [None]
  - METASTASES TO NECK [None]
  - SEPSIS [None]
  - HEART RATE DECREASED [None]
  - HYPOTENSION [None]
  - BACILLUS INFECTION [None]
  - NECK PAIN [None]
  - VISION BLURRED [None]
